FAERS Safety Report 4847021-2 (Version None)
Quarter: 2005Q4

REPORT INFORMATION
  Report Type: 
  Country: None (occurrence: None)
  Receive Date: 20051205
  Receipt Date: 20051121
  Transmission Date: 20060501
  Serious: Yes (Other)
  Sender: FDA-Public Use
  Company Number: 2005159564

PATIENT
  Age: 36 Year
  Sex: Female

DRUGS (3)
  1. MEDROL [Suspect]
     Indication: ILL-DEFINED DISORDER
     Dosage: 16 MG (16 MG, (1 IN 1 D)
     Dates: start: 20050101, end: 20051101
  2. UROFOLLITROPIN (UROFOLLITROPIN) [Concomitant]
  3. DOXYCYCLINE [Concomitant]

REACTIONS (3)
  - BLADDER SPASM [None]
  - POLLAKIURIA [None]
  - URINARY RETENTION [None]
